FAERS Safety Report 4714356-3 (Version None)
Quarter: 2005Q3

REPORT INFORMATION
  Report Type: 
  Country: None (occurrence: None)
  Receive Date: 20050712
  Receipt Date: 20050610
  Transmission Date: 20060218
  Serious: No
  Sender: FDA-Public Use
  Company Number: 200511750GDS

PATIENT
  Age: 77 Year
  Sex: Male
  Weight: 55 kg

DRUGS (3)
  1. ACTIMAX (MOXIFLOXACIN) [Suspect]
     Indication: PNEUMONIA
     Dosage: 400 MG, QD, ORAL; 200 MG, QD, ORAL
     Route: 048
     Dates: start: 20050227, end: 20050228
  2. ACTIMAX (MOXIFLOXACIN) [Suspect]
     Indication: PNEUMONIA
     Dosage: 400 MG, QD, ORAL; 200 MG, QD, ORAL
     Route: 048
     Dates: start: 20050301, end: 20050308
  3. ANALGETIC DRUGS [Concomitant]

REACTIONS (3)
  - CONFUSIONAL STATE [None]
  - DIZZINESS [None]
  - RENAL CELL CARCINOMA STAGE UNSPECIFIED [None]
